FAERS Safety Report 8876244 (Version 1)
Quarter: 2012Q4

REPORT INFORMATION
  Report Type: 
  Country: US (occurrence: US)
  Receive Date: 20121031
  Receipt Date: 20121031
  Transmission Date: 20130627
  Serious: No
  Sender: FDA-Public Use
  Company Number: US-B.I. PHARMACEUTICALS,INC./RIDGEFIELD-2012-BP-26875BP

PATIENT
  Age: 55 Year
  Sex: Female
  Weight: 94 kg

DRUGS (4)
  1. PRADAXA [Suspect]
     Indication: ATRIAL FIBRILLATION
     Dosage: 300 mg
     Route: 048
     Dates: start: 20121011
  2. VITAMIN D [Concomitant]
     Indication: SUPPLEMENTATION THERAPY
     Route: 048
     Dates: start: 201206
  3. MULTAQ [Concomitant]
     Indication: ARRHYTHMIA
     Dosage: 800 mg
     Route: 048
     Dates: start: 20121011
  4. SYNTHROID [Concomitant]
     Indication: HYPOTHYROIDISM
     Dates: start: 2010

REACTIONS (2)
  - Dyspepsia [Not Recovered/Not Resolved]
  - Headache [Not Recovered/Not Resolved]
